FAERS Safety Report 10080660 (Version 1)
Quarter: 2014Q2

REPORT INFORMATION
  Report Type: Spontaneous
  Country: MX (occurrence: MX)
  Receive Date: 20140416
  Receipt Date: 20140416
  Transmission Date: 20141212
  Serious: Yes (Death)
  Sender: FDA-Public Use
  Company Number: MX-UCBSA-118057

PATIENT
  Age: 73 Year
  Sex: Female
  Weight: 75 kg

DRUGS (3)
  1. NUBRENZA/ NEUPRO [Suspect]
     Indication: PARKINSON^S DISEASE
     Route: 062
     Dates: start: 20111115, end: 20140319
  2. MADOPAR [Concomitant]
     Indication: PARKINSON^S DISEASE
     Dosage: DOSE PER INTAKE: 4.5 (UNITS NOT SPECIFIED)
     Dates: start: 2011, end: 20140319
  3. LIRICA [Concomitant]
     Indication: PARKINSON^S DISEASE
     Dosage: DOSE PER INTAKE: 2 TABLETS
     Dates: start: 2011, end: 20140319

REACTIONS (1)
  - Pneumonia [Fatal]
